FAERS Safety Report 7402050-X (Version None)
Quarter: 2011Q2

REPORT INFORMATION
  Report Type: 
  Country: None (occurrence: None)
  Receive Date: 20110408
  Receipt Date: 20110408
  Transmission Date: 20111010
  Serious: Yes (Hospitalization)
  Sender: FDA-Public Use
  Company Number: None

PATIENT
  Age: 49 Year
  Sex: Female
  Weight: 96.1626 kg

DRUGS (1)
  1. TPN [Suspect]
     Indication: HYPOPHAGIA
     Dosage: 900 ML 36ML/HR IV
     Route: 042
     Dates: start: 20110302, end: 20110309

REACTIONS (3)
  - CULTURE POSITIVE [None]
  - SERRATIA INFECTION [None]
  - GENERAL PHYSICAL HEALTH DETERIORATION [None]
